FAERS Safety Report 7986923-5 (Version None)
Quarter: 2011Q4

REPORT INFORMATION
  Report Type: 
  Country: None (occurrence: None)
  Receive Date: 20111216
  Receipt Date: 20110907
  Transmission Date: 20120403
  Serious: No
  Sender: FDA-Public Use
  Company Number: US-BRISTOL-MYERS SQUIBB COMPANY-16042038

PATIENT
  Age: 54 Year
  Sex: Male

DRUGS (5)
  1. BYSTOLIC [Suspect]
     Indication: HYPERTENSION
     Dosage: TABS
     Dates: start: 20110815
  2. PROLIXIN [Suspect]
     Indication: ANXIETY
  3. ARTANE [Suspect]
     Indication: EXTRAPYRAMIDAL DISORDER
  4. ABILIFY [Suspect]
     Indication: ANXIETY
     Route: 048
     Dates: start: 20110815, end: 20110815
  5. DIOVAN [Suspect]
     Indication: HYPERTENSION

REACTIONS (1)
  - SPINAL DISORDER [None]
